FAERS Safety Report 19891456 (Version 1)
Quarter: 2021Q3

REPORT INFORMATION
  Report Type: Report from Study
  Country: US (occurrence: US)
  Receive Date: 20210928
  Receipt Date: 20210928
  Transmission Date: 20211014
  Serious: Yes (Hospitalization, Other)
  Sender: FDA-Public Use
  Company Number: US-SHIRE-US201935759AA

PATIENT
  Sex: Female
  Weight: 91 kg

DRUGS (13)
  1. LANADELUMAB [Suspect]
     Active Substance: LANADELUMAB
     Indication: HYPOGAMMAGLOBULINAEMIA
     Dosage: 300 MILLIGRAM, Q2WEEKS
     Route: 058
     Dates: start: 20181105
  2. PROTONIX [OMEPRAZOLE] [Concomitant]
     Active Substance: OMEPRAZOLE
     Route: 065
  3. BENTYL [Concomitant]
     Active Substance: DICYCLOMINE HYDROCHLORIDE
     Route: 065
  4. FIRAZYR [Suspect]
     Active Substance: ICATIBANT ACETATE
     Indication: HYPOGAMMAGLOBULINAEMIA
     Dosage: 30 MILLIGRAM, AS REQ^D
     Route: 058
     Dates: start: 20131106
  5. LYRICA [Concomitant]
     Active Substance: PREGABALIN
  6. BUPRENORPHINE. [Concomitant]
     Active Substance: BUPRENORPHINE
     Route: 065
  7. LANADELUMAB [Suspect]
     Active Substance: LANADELUMAB
     Indication: HEREDITARY ANGIOEDEMA
     Dosage: 300 MILLILITER, Q2WEEKS
     Route: 058
     Dates: start: 20181109
  8. FIRAZYR [Suspect]
     Active Substance: ICATIBANT ACETATE
     Indication: HEREDITARY ANGIOEDEMA
     Dosage: 30 MILLIGRAM, AS REQ^D
     Route: 058
     Dates: start: 20190821
  9. AMBIEN [Concomitant]
     Active Substance: ZOLPIDEM TARTRATE
     Route: 065
  10. FIRAZYR [Suspect]
     Active Substance: ICATIBANT ACETATE
     Indication: HYPOGAMMAGLOBULINAEMIA
     Dosage: 30 MILLIGRAM, AS REQ^D
     Route: 058
     Dates: start: 20131106
  11. FIRAZYR [Suspect]
     Active Substance: ICATIBANT ACETATE
     Indication: HEREDITARY ANGIOEDEMA
     Dosage: 30 MILLIGRAM, AS REQ^D
     Route: 058
     Dates: start: 20190821
  12. ELIQUIS [Concomitant]
     Active Substance: APIXABAN
     Route: 065
  13. TRAMADOL. [Concomitant]
     Active Substance: TRAMADOL
     Route: 065

REACTIONS (3)
  - Tooth extraction [Unknown]
  - Transient ischaemic attack [Recovering/Resolving]
  - Pneumonia [Unknown]
